FAERS Safety Report 12716553 (Version 2)
Quarter: 2016Q4

REPORT INFORMATION
  Report Type: Spontaneous
  Country: US (occurrence: US)
  Receive Date: 20160906
  Receipt Date: 20161130
  Transmission Date: 20170207
  Serious: Yes (Hospitalization, Other)
  Sender: FDA-Public Use
  Company Number: US-PFIZER INC-2016411436

PATIENT
  Age: 72 Year
  Sex: Male
  Weight: 79.38 kg

DRUGS (17)
  1. FLOMAX [Concomitant]
     Active Substance: TAMSULOSIN HYDROCHLORIDE
     Dosage: 4 MG, UNK
     Dates: start: 201409
  2. LIPITOR [Concomitant]
     Active Substance: ATORVASTATIN CALCIUM
     Dosage: 40 MG, UNK
     Dates: start: 201409
  3. VITAMIN C [Concomitant]
     Active Substance: ASCORBIC ACID
     Dosage: 50 MG, UNK
     Dates: start: 201409
  4. PROTONIX [Concomitant]
     Active Substance: PANTOPRAZOLE SODIUM
     Dosage: 40 MG, UNK
     Dates: start: 201409
  5. CARVEDILOL. [Concomitant]
     Active Substance: CARVEDILOL
     Indication: CARDIAC DISORDER
  6. IRON [Concomitant]
     Active Substance: IRON
     Dosage: 325 MG, UNK
     Dates: start: 201409
  7. SILDENAFIL CITRATE. [Suspect]
     Active Substance: SILDENAFIL CITRATE
     Indication: CARDIAC DISORDER
     Dosage: 20 MG, 3X/DAY
     Route: 048
     Dates: start: 201608
  8. CARVEDILOL. [Concomitant]
     Active Substance: CARVEDILOL
     Indication: BLOOD PRESSURE ABNORMAL
     Dosage: 6.25 MG, 2X/DAY
     Dates: start: 201409
  9. COUMADIN [Concomitant]
     Active Substance: WARFARIN SODIUM
     Dosage: VARYING DOSE BASED ON INR
     Dates: start: 201409
  10. HYDRALAZINE [Concomitant]
     Active Substance: HYDRALAZINE HYDROCHLORIDE
     Dosage: 50 MG, UNK
     Dates: start: 201409
  11. SINGULAIR [Concomitant]
     Active Substance: MONTELUKAST SODIUM
     Dosage: 10 MG, UNK
     Dates: start: 201409
  12. PROBIOTIC [Concomitant]
     Active Substance: PROBIOTICS NOS
     Dosage: UNK
     Dates: start: 201409
  13. BUMETANIDE. [Concomitant]
     Active Substance: BUMETANIDE
     Dosage: 0.5 MG, UNK
     Dates: start: 201409
  14. POTASSIUM [Concomitant]
     Active Substance: POTASSIUM
     Dosage: 10 MEQ, UNK
     Dates: start: 201409
  15. SYMBICORT [Concomitant]
     Active Substance: BUDESONIDE\FORMOTEROL FUMARATE DIHYDRATE
     Dosage: [BUDESONIDE 160/ FORMOTEROL FUMARATE 4.5] INHALER
     Dates: start: 201409
  16. AMIODARONE [Concomitant]
     Active Substance: AMIODARONE
     Dosage: 200 MG, UNK
     Dates: start: 201409
  17. MAGNESIUM OXIDE. [Concomitant]
     Active Substance: MAGNESIUM OXIDE
     Dosage: 400 MG, UNK
     Dates: start: 201409

REACTIONS (2)
  - Product use issue [Unknown]
  - Sepsis [Recovered/Resolved]

NARRATIVE: CASE EVENT DATE: 2016
